FAERS Safety Report 7719239-2 (Version None)
Quarter: 2011Q3

REPORT INFORMATION
  Report Type: 
  Country: None (occurrence: None)
  Receive Date: 20110825
  Receipt Date: 20110811
  Transmission Date: 20111222
  Serious: Yes (Hospitalization)
  Sender: FDA-Public Use
  Company Number: US-ACCORD-010146

PATIENT
  Age: 74 Year
  Sex: Female

DRUGS (1)
  1. GEMCITABINE [Suspect]
     Indication: PANCREATIC CARCINOMA
     Dosage: / INTRAVENOUS (NOT OTHERWISE SPECIFIED)
     Dates: start: 20100923

REACTIONS (19)
  - JOINT SWELLING [None]
  - PULMONARY EMBOLISM [None]
  - HAEMOGLOBIN DECREASED [None]
  - GAIT DISTURBANCE [None]
  - TENDERNESS [None]
  - LETHARGY [None]
  - ENCEPHALOPATHY [None]
  - NEUTROPHIL PERCENTAGE INCREASED [None]
  - BLOOD SODIUM DECREASED [None]
  - SYSTEMIC INFLAMMATORY RESPONSE SYNDROME [None]
  - OEDEMA PERIPHERAL [None]
  - TACHYCARDIA [None]
  - PAIN IN EXTREMITY [None]
  - SKIN WARM [None]
  - BLOOD CREATINE DECREASED [None]
  - ASPARTATE AMINOTRANSFERASE INCREASED [None]
  - ERYTHEMA [None]
  - PYREXIA [None]
  - AGITATION [None]
